FAERS Safety Report 23016423 (Version 2)
Quarter: 2024Q1

REPORT INFORMATION
  Report Type: Spontaneous
  Country: US (occurrence: US)
  Receive Date: 20231002
  Receipt Date: 20240208
  Transmission Date: 20240409
  Serious: No
  Sender: FDA-Public Use
  Company Number: US-SA-SAC20230927001364

PATIENT
  Age: 35 Year
  Sex: Female

DRUGS (1)
  1. DUPIXENT [Suspect]
     Active Substance: DUPILUMAB
     Indication: Chronic rhinosinusitis with nasal polyps
     Dosage: 300 MG, QOW
     Route: 058
     Dates: start: 20230906

REACTIONS (11)
  - Anosmia [Unknown]
  - Nasal congestion [Unknown]
  - Nasal discomfort [Unknown]
  - Rhinorrhoea [Unknown]
  - Condition aggravated [Unknown]
  - Nasal pruritus [Unknown]
  - Throat irritation [Unknown]
  - Upper-airway cough syndrome [Unknown]
  - Tinnitus [Unknown]
  - Chronic rhinosinusitis with nasal polyps [Unknown]
  - Eye pruritus [Unknown]

NARRATIVE: CASE EVENT DATE: 20230901
